FAERS Safety Report 8911818 (Version 1)
Quarter: 2012Q4

REPORT INFORMATION
  Report Type: Spontaneous
  Country: US (occurrence: None)
  Receive Date: 20121113
  Receipt Date: 20121113
  Transmission Date: 20130627
  Serious: Yes (Other)
  Sender: FDA-Public Use
  Company Number: 1485297

PATIENT
  Age: 3 Month

DRUGS (3)
  1. PRECEDEX [Suspect]
     Indication: DRUG USE FOR UNKNOWN INDICATION
  2. MIDAZOLAM [Concomitant]
  3. MORPHINE [Concomitant]

REACTIONS (9)
  - Nodal rhythm [None]
  - Central venous pressure increased [None]
  - Blood pressure decreased [None]
  - Cardiac output decreased [None]
  - Incorrect drug administration duration [None]
  - Urine output decreased [None]
  - Blood lactic acid increased [None]
  - Haemodynamic instability [None]
  - Infusion related reaction [None]
